FAERS Safety Report 5345136-6 (Version None)
Quarter: 2007Q2

REPORT INFORMATION
  Report Type: 
  Country: None (occurrence: None)
  Receive Date: 20070417
  Receipt Date: 20060824
  Transmission Date: 20071010
  Serious: Yes (Hospitalization)
  Sender: FDA-Public Use
  Company Number: 06P-163-0341864-00

PATIENT
  Age: 14 Year
  Sex: Female

DRUGS (2)
  1. BIAXIN XL [Suspect]
  2. FAMOTIDINE [Concomitant]

REACTIONS (1)
  - PANCREATITIS ACUTE [None]
